FAERS Safety Report 10094281 (Version 1)
Quarter: 2014Q2

REPORT INFORMATION
  Report Type: Spontaneous
  Country: US (occurrence: None)
  Receive Date: 20140418
  Receipt Date: 20140418
  Transmission Date: 20141212
  Serious: Yes (Death)
  Sender: FDA-Public Use
  Company Number: B0986431A

PATIENT
  Age: 56 Year
  Sex: Male

DRUGS (7)
  1. VANCOMYCIN [Suspect]
     Indication: ENCEPHALITIS
  2. MEROPENEM [Suspect]
     Indication: ENCEPHALITIS
  3. AMPICILLIN TRIHYDRATE [Suspect]
     Indication: ENCEPHALITIS
  4. PYRIMETHAMINE [Suspect]
     Indication: ENCEPHALITIS
  5. ACYCLOVIR [Suspect]
     Indication: ENCEPHALITIS
  6. AMPHOTERICIN [Suspect]
     Indication: ENCEPHALITIS
  7. STEROID [Suspect]
     Indication: ENCEPHALITIS

REACTIONS (3)
  - No therapeutic response [None]
  - Brain death [None]
  - Balamuthia infection [None]
